FAERS Safety Report 7518666-6 (Version None)
Quarter: 2011Q2

REPORT INFORMATION
  Report Type: 
  Country: None (occurrence: None)
  Receive Date: 20110601
  Receipt Date: 20110601
  Transmission Date: 20111010
  Serious: Yes (Other)
  Sender: FDA-Public Use
  Company Number: None

PATIENT
  Age: 64 Year
  Sex: Male
  Weight: 70.7611 kg

DRUGS (1)
  1. CARBAMAZEPINE [Suspect]
     Indication: ANXIETY
     Dosage: 200MG 1 TAB TWICE A DAY PO
     Route: 048
     Dates: start: 20110521, end: 20110528

REACTIONS (5)
  - ANXIETY [None]
  - TREMOR [None]
  - MUSCLE TWITCHING [None]
  - HALLUCINATION [None]
  - BALANCE DISORDER [None]
